FAERS Safety Report 17567433 (Version 1)
Quarter: 2020Q1

REPORT INFORMATION
  Report Type: Spontaneous
  Country: DE (occurrence: DE)
  Receive Date: 20200320
  Receipt Date: 20200320
  Transmission Date: 20200409
  Serious: Yes (Hospitalization)
  Sender: FDA-Public Use
  Company Number: DE-PFIZER INC-2020118101

PATIENT
  Age: 50 Year
  Sex: Female

DRUGS (1)
  1. VENLAFAXINE HCL [Suspect]
     Active Substance: VENLAFAXINE HYDROCHLORIDE
     Dosage: 300 MG, 1X/DAY, 1-0-0-0

REACTIONS (9)
  - Restlessness [Unknown]
  - Psychomotor hyperactivity [Unknown]
  - Sedation [Unknown]
  - Incontinence [Unknown]
  - General physical health deterioration [Unknown]
  - Disorientation [Unknown]
  - Fatigue [Unknown]
  - Psychomotor retardation [Unknown]
  - Seizure [Unknown]
